FAERS Safety Report 5026448-2 (Version None)
Quarter: 2006Q2

REPORT INFORMATION
  Report Type: 
  Country: None (occurrence: None)
  Receive Date: 20060613
  Receipt Date: 20060613
  Transmission Date: 20061013
  Serious: Yes (Other)
  Sender: FDA-Public Use
  Company Number: None

PATIENT
  Age: 66 Year
  Sex: Female
  Weight: 68.1 kg

DRUGS (10)
  1. NAFCILLIN SODIUM [Suspect]
     Indication: OSTEOMYELITIS
     Dosage: 1.5 G   Q 4 HOURS  IV
     Route: 042
     Dates: start: 20060531, end: 20060608
  2. GENTAMICIN [Suspect]
     Dosage: 60 MG   Q 24 HOURS   IV
     Route: 042
     Dates: start: 20060602, end: 20060608
  3. DIGOXIN [Concomitant]
  4. ZOCOR [Concomitant]
  5. SPIRONOLACTONE [Concomitant]
  6. LISINOPRIL [Concomitant]
  7. VICODIN [Concomitant]
  8. ALBUTEROL [Concomitant]
  9. METOPROLOL TARTRATE [Concomitant]
  10. COUMADIN [Concomitant]

REACTIONS (2)
  - PRURITUS [None]
  - RASH MACULO-PAPULAR [None]
